FAERS Safety Report 8219607-9 (Version None)
Quarter: 2012Q1

REPORT INFORMATION
  Report Type: 
  Country: None (occurrence: None)
  Receive Date: 20120319
  Receipt Date: 20120312
  Transmission Date: 20120608
  Serious: Yes (Death)
  Sender: FDA-Public Use
  Company Number: GB-CELGENEUS-167-50794-12020715

PATIENT
  Sex: Female

DRUGS (3)
  1. ANTIEMETIC DRUG [Concomitant]
     Indication: NAUSEA
     Route: 065
  2. VIDAZA [Suspect]
     Route: 050
  3. ANTIEMETIC DRUG [Concomitant]
     Indication: VOMITING

REACTIONS (4)
  - NAUSEA [None]
  - SUBDURAL HAEMORRHAGE [None]
  - VOMITING [None]
  - WEIGHT DECREASED [None]
